FAERS Safety Report 25551090 (Version 4)
Quarter: 2025Q4

REPORT INFORMATION
  Report Type: Spontaneous
  Country: JP (occurrence: JP)
  Receive Date: 20250714
  Receipt Date: 20251204
  Transmission Date: 20260117
  Serious: Yes (Death, Life-Threatening, Hospitalization, Other)
  Sender: AMGEN
  Company Number: JP-AMGEN-JPNSP2025136499

PATIENT
  Age: 73 Year
  Sex: Male
  Weight: 53 kg

DRUGS (3)
  1. IMDELLTRA [Suspect]
     Active Substance: TARLATAMAB-DLLE
     Indication: Small cell lung cancer extensive stage
     Dosage: 1 MILLIGRAM, (DRIP INFUSION)
     Route: 040
     Dates: start: 20250701, end: 20250701
  2. PREDONINE [Concomitant]
     Active Substance: PREDNISOLONE
     Indication: Sarcoidosis
     Dosage: 1 MILLIGRAM, QD, EVERY DAY
  3. PREDONINE [Concomitant]
     Active Substance: PREDNISOLONE
     Indication: Cardiac sarcoidosis

REACTIONS (4)
  - Cytokine release syndrome [Fatal]
  - Depressed level of consciousness [Not Recovered/Not Resolved]
  - Liver disorder [Not Recovered/Not Resolved]
  - Renal disorder [Not Recovered/Not Resolved]

NARRATIVE: CASE EVENT DATE: 20250701
